FAERS Safety Report 10128657 (Version 2)
Quarter: 2015Q1

REPORT INFORMATION
  Report Type: Report from Study
  Country: NL (occurrence: NL)
  Receive Date: 20140428
  Receipt Date: 20150224
  Transmission Date: 20150720
  Serious: Yes (Hospitalization)
  Sender: FDA-Public Use
  Company Number: NL-JNJFOC-20140415623

PATIENT
  Age: 68 Year
  Sex: Female
  Weight: 80 kg

DRUGS (8)
  1. XARELTO [Suspect]
     Active Substance: RIVAROXABAN
     Indication: THROMBOSIS PROPHYLAXIS
     Route: 065
     Dates: start: 20130618
  2. XARELTO [Suspect]
     Active Substance: RIVAROXABAN
     Indication: ATRIAL FIBRILLATION
     Route: 065
     Dates: start: 20130618
  3. METOPROLOL [Concomitant]
     Active Substance: METOPROLOL
     Route: 065
     Dates: start: 20120201
  4. RED BLOOD CELLS CONCENTRATED [Concomitant]
     Dosage: 4 EC
     Route: 065
     Dates: start: 20131210, end: 20131213
  5. CALCICHEW [Concomitant]
     Active Substance: CALCIUM CARBONATE
     Route: 065
     Dates: start: 20111004, end: 201309
  6. LANOXIN [Concomitant]
     Active Substance: DIGOXIN
     Route: 065
     Dates: start: 20120130
  7. XARELTO [Suspect]
     Active Substance: RIVAROXABAN
     Indication: CEREBROVASCULAR ACCIDENT PROPHYLAXIS
     Route: 065
     Dates: start: 20130618
  8. ACENOCOUMAROL [Concomitant]
     Active Substance: ACENOCOUMAROL
     Indication: ANTICOAGULANT THERAPY
     Route: 065
     Dates: start: 20120131, end: 20130617

REACTIONS (1)
  - Anaemia postoperative [Recovered/Resolved]

NARRATIVE: CASE EVENT DATE: 20131210
